FAERS Safety Report 10223928 (Version 1)
Quarter: 2014Q2

REPORT INFORMATION
  Report Type: Spontaneous
  Country: US (occurrence: US)
  Receive Date: 20140609
  Receipt Date: 20140609
  Transmission Date: 20141212
  Serious: Yes (Other)
  Sender: FDA-Public Use
  Company Number: US-JNJFOC-20140517618

PATIENT
  Age: 75 Year
  Sex: Male

DRUGS (2)
  1. STELARA [Suspect]
     Indication: PSORIASIS
     Dosage: NOW SELF INJECTS AT HOME
     Route: 058
     Dates: start: 2012
  2. STELARA [Suspect]
     Indication: PSORIASIS
     Dosage: NOW SELF INJECTS AT HOME
     Route: 058
     Dates: start: 20140520

REACTIONS (1)
  - Superficial spreading melanoma stage unspecified [Unknown]
